FAERS Safety Report 16969812 (Version 3)
Quarter: 2024Q1

REPORT INFORMATION
  Report Type: Spontaneous
  Country: AU (occurrence: AU)
  Receive Date: 20191029
  Receipt Date: 20240328
  Transmission Date: 20240410
  Serious: Yes (Other)
  Sender: FDA-Public Use
  Company Number: AU-PFIZER INC-2019460130

PATIENT
  Age: 17 Month
  Sex: Male

DRUGS (12)
  1. CYTARABINE [Suspect]
     Active Substance: CYTARABINE
     Indication: B-cell type acute leukaemia
     Dosage: UNK, CYCLIC (CONSOLIDATION THERAPY)
  2. DAUNORUBICIN HYDROCHLORIDE [Suspect]
     Active Substance: DAUNORUBICIN HYDROCHLORIDE
     Indication: B-cell type acute leukaemia
     Dosage: UNK, CYCLIC (INDUCTION CHEMOTHERAPY)
  3. METHOTREXATE SODIUM [Suspect]
     Active Substance: METHOTREXATE SODIUM
     Indication: B-cell type acute leukaemia
     Dosage: UNK, CYCLIC (CONSOLIDATION THERAPY)
     Route: 037
  4. METHOTREXATE SODIUM [Suspect]
     Active Substance: METHOTREXATE SODIUM
     Indication: B-cell type acute leukaemia
     Dosage: UNK, CYCLIC (CONSOLIDATION THERAPY)
  5. VINCRISTINE SULFATE [Suspect]
     Active Substance: VINCRISTINE SULFATE
     Indication: B-cell type acute leukaemia
     Dosage: UNK, CYCLIC (INDUCTION CHEMOTHERAPY)
  6. VINCRISTINE SULFATE [Suspect]
     Active Substance: VINCRISTINE SULFATE
     Dosage: UNK, CYCLIC (CONSOLIDATION THERAPY)
  7. DEXAMETHASONE [Suspect]
     Active Substance: DEXAMETHASONE
     Indication: B-cell type acute leukaemia
     Dosage: UNK, CYCLIC (CONSOLIDATION THERAPY)
     Route: 048
  8. PREDNISOLONE [Suspect]
     Active Substance: PREDNISOLONE
     Indication: B-cell type acute leukaemia
     Dosage: UNK, CYCLIC (INDUCTION CHEMOTHERAPY)
  9. MERCAPTOPURINE [Suspect]
     Active Substance: MERCAPTOPURINE
     Indication: B-cell type acute leukaemia
     Dosage: UNK, CYCLIC (CONSOLIDATION THERAPY)
  10. CYCLOPHOSPHAMIDE [Suspect]
     Active Substance: CYCLOPHOSPHAMIDE
     Indication: B-cell type acute leukaemia
     Dosage: UNK, CYCLIC (CONSOLIDATION THERAPY)
  11. ASPARAGINASE [Suspect]
     Active Substance: ASPARAGINASE
     Indication: B-cell type acute leukaemia
     Dosage: UNK, CYCLIC (INDUCTION CHEMOTHERAPY)
  12. ASPARAGINASE [Suspect]
     Active Substance: ASPARAGINASE
     Dosage: UNK, CYCLIC (CONSOLIDATION THERAPY)

REACTIONS (2)
  - Myelosuppression [Unknown]
  - Cytopenia [Unknown]
